FAERS Safety Report 25759644 (Version 2)
Quarter: 2025Q4

REPORT INFORMATION
  Report Type: Spontaneous
  Country: JP (occurrence: JP)
  Receive Date: 20250904
  Receipt Date: 20251007
  Transmission Date: 20260118
  Serious: Yes (Hospitalization)
  Sender: ROCHE
  Company Number: JP-CHUGAI-2025027641

PATIENT
  Age: 62 Year
  Sex: Male
  Weight: 54.3 kg

DRUGS (8)
  1. AVASTIN [Suspect]
     Active Substance: BEVACIZUMAB
     Indication: Lung adenocarcinoma
     Dosage: 820 MILLIGRAM, ONCE/3WEEKS
     Route: 042
     Dates: start: 20250805, end: 20250805
  2. TECENTRIQ [Suspect]
     Active Substance: ATEZOLIZUMAB
     Indication: Lung adenocarcinoma
     Dosage: 1200 MILLIGRAM, ONCE/3WEEKS
     Route: 042
     Dates: start: 20250805, end: 20250805
  3. CARBOPLATIN [Suspect]
     Active Substance: CARBOPLATIN
     Indication: Lung adenocarcinoma
     Dosage: 615 MILLIGRAM, ONCE/3WEEKS
     Route: 042
     Dates: start: 20250805, end: 20250805
  4. PACLITAXEL [Suspect]
     Active Substance: PACLITAXEL
     Indication: Lung adenocarcinoma
     Dosage: 324 MILLIGRAM, ONCE/3WEEKS
     Route: 042
     Dates: start: 20250805, end: 20250805
  5. LENOGRASTIM [Concomitant]
     Active Substance: LENOGRASTIM
     Dates: start: 20250815, end: 20250815
  6. DEXAMETHASONE SODIUM PHOSPHATE [Concomitant]
     Active Substance: DEXAMETHASONE SODIUM PHOSPHATE
     Dates: start: 20250805, end: 20250805
  7. FAMOTIDINE [Concomitant]
     Active Substance: FAMOTIDINE
     Dates: start: 20250805, end: 20250805
  8. SODIUM CHLORIDE [Concomitant]
     Active Substance: SODIUM CHLORIDE
     Dates: start: 20250805, end: 20250805

REACTIONS (2)
  - Drug eruption [Recovered/Resolved]
  - Pruritus [Recovered/Resolved]

NARRATIVE: CASE EVENT DATE: 20250816
